FAERS Safety Report 17792348 (Version 1)
Quarter: 2020Q2

REPORT INFORMATION
  Report Type: Spontaneous
  Country: IT (occurrence: IT)
  Receive Date: 20200515
  Receipt Date: 20200515
  Transmission Date: 20200714
  Serious: Yes (Hospitalization)
  Sender: FDA-Public Use
  Company Number: IT-PFIZER INC-2020192350

PATIENT
  Age: 96 Year
  Sex: Male

DRUGS (12)
  1. NOVORAPID [Concomitant]
     Active Substance: INSULIN ASPART
  2. MOVICOL [Concomitant]
     Active Substance: POLYETHYLENE GLYCOL 3350\POTASSIUM CHLORIDE\SODIUM BICARBONATE\SODIUM CHLORIDE
  3. PANTORC [Concomitant]
     Active Substance: PANTOPRAZOLE SODIUM
     Dosage: 20 MG
  4. LANTUS [Concomitant]
     Active Substance: INSULIN GLARGINE
  5. DELTACORTENE [Concomitant]
     Active Substance: PREDNISONE
  6. AZITHROMYCIN ANHYDROUS. [Suspect]
     Active Substance: AZITHROMYCIN ANHYDROUS
     Indication: CORONAVIRUS INFECTION
     Dosage: 500 MG, 1X/DAY
     Dates: start: 20200416, end: 20200417
  7. METOPROLOLO [Concomitant]
     Dosage: 50 MG
  8. CARDIRENE [Concomitant]
     Active Substance: ASPIRIN DL-LYSINE
     Dosage: 75 MG
  9. LASIX [Concomitant]
     Active Substance: FUROSEMIDE
  10. NORMIX [Concomitant]
     Active Substance: RIFAXIMIN
  11. PLAQUENIL [Suspect]
     Active Substance: HYDROXYCHLOROQUINE SULFATE
     Indication: CORONAVIRUS INFECTION
     Dosage: 400 MG, 1X/DAY
     Dates: start: 20200418, end: 20200418
  12. DOBETIN [CYANOCOBALAMIN] [Concomitant]
     Active Substance: CYANOCOBALAMIN

REACTIONS (4)
  - Off label use [Recovered/Resolved]
  - Arrhythmia [Recovered/Resolved]
  - Product use in unapproved indication [Recovered/Resolved]
  - Extrasystoles [Recovered/Resolved]

NARRATIVE: CASE EVENT DATE: 20200416
